FAERS Safety Report 9974418 (Version 1)
Quarter: 2014Q1

REPORT INFORMATION
  Report Type: Report from Study
  Country: US (occurrence: US)
  Receive Date: 20140306
  Receipt Date: 20140306
  Transmission Date: 20141002
  Serious: No
  Sender: FDA-Public Use
  Company Number: US-ABBVIE-13P-163-1159002-00

PATIENT
  Age: 62 Year
  Sex: Female

DRUGS (9)
  1. HUMIRA [Suspect]
     Indication: RHEUMATOID ARTHRITIS
     Dates: start: 20131001
  2. VALSARTAN [Concomitant]
     Indication: HYPERTENSION
     Dosage: 160/12.5 MG ONCE DAILY
  3. VITAMIN D [Concomitant]
     Indication: PRODUCT USED FOR UNKNOWN INDICATION
  4. FOLIC ACID [Concomitant]
     Indication: PRODUCT USED FOR UNKNOWN INDICATION
     Dosage: 1 MG DAILY
     Route: 048
  5. GLYBURIDE AND METFORMIN HCL [Concomitant]
     Indication: DIABETES MELLITUS
     Dosage: 5/500 MG
     Route: 048
  6. ASA [Concomitant]
     Indication: THROMBOSIS PROPHYLAXIS
     Dosage: 81 MG DAILY
     Route: 048
  7. ZYRTEC [Concomitant]
     Indication: HYPERSENSITIVITY
  8. TYLENOL [Concomitant]
     Indication: PAIN
  9. VICODIN [Concomitant]
     Indication: PAIN

REACTIONS (1)
  - Injection site haemorrhage [Recovered/Resolved]
